FAERS Safety Report 21641899 (Version 1)
Quarter: 2022Q4

REPORT INFORMATION
  Report Type: Spontaneous
  Country: US (occurrence: US)
  Receive Date: 20221125
  Receipt Date: 20221125
  Transmission Date: 20230112
  Serious: No
  Sender: FDA-Public Use
  Company Number: US-AUROBINDO-AUR-APL-2022-035053

PATIENT
  Sex: Female

DRUGS (1)
  1. FOLOTYN [Suspect]
     Active Substance: PRALATREXATE
     Indication: T-cell lymphoma
     Dosage: 60 MILLIGRAM (60 MG? PATIENT HAD RECEIVED A TOTAL OF 4 DOSES)
     Route: 065
     Dates: start: 20220422

REACTIONS (1)
  - Skin reaction [Unknown]
